FAERS Safety Report 12727863 (Version 2)
Quarter: 2016Q4

REPORT INFORMATION
  Report Type: Spontaneous
  Country: FR (occurrence: FR)
  Receive Date: 20160909
  Receipt Date: 20161206
  Transmission Date: 20170207
  Serious: Yes (Death, Hospitalization, Other)
  Sender: FDA-Public Use
  Company Number: FR-ACTELION-A-CH2016-141800

PATIENT
  Age: 15 Year
  Sex: Male

DRUGS (4)
  1. TRACLEER [Suspect]
     Active Substance: BOSENTAN
     Indication: PULMONARY ARTERIAL HYPERTENSION
     Dosage: UNK
     Route: 048
     Dates: start: 20160130, end: 20160814
  2. REVATIO [Concomitant]
     Active Substance: SILDENAFIL CITRATE
     Dosage: UNK
     Dates: start: 20160120, end: 20160814
  3. HEPARIN [Concomitant]
     Active Substance: HEPARIN SODIUM
     Dosage: UNK
     Dates: start: 20160701, end: 20160814
  4. VELETRI [Suspect]
     Active Substance: EPOPROSTENOL
     Indication: PULMONARY ARTERIAL HYPERTENSION
     Dosage: UNK
     Route: 042
     Dates: start: 20160219, end: 20160814

REACTIONS (10)
  - Lung disorder [Fatal]
  - Condition aggravated [Unknown]
  - Pneumonia pseudomonal [Unknown]
  - Haemodynamic instability [Fatal]
  - Pulmonary arterial hypertension [Unknown]
  - Extracorporeal membrane oxygenation [Not Recovered/Not Resolved]
  - Acute respiratory distress syndrome [Unknown]
  - Ventricular dysfunction [Fatal]
  - Multi-organ disorder [Fatal]
  - Cytomegalovirus test positive [Unknown]

NARRATIVE: CASE EVENT DATE: 20160701
